FAERS Safety Report 17845342 (Version 1)
Quarter: 2020Q2

REPORT INFORMATION
  Report Type: Spontaneous
  Country: US (occurrence: US)
  Receive Date: 20200529
  Receipt Date: 20200529
  Transmission Date: 20200714
  Serious: Yes (Death)
  Sender: FDA-Public Use
  Company Number: None

PATIENT
  Age: 92 Year
  Sex: Male

DRUGS (13)
  1. METOPROLOL TARTRATE. [Concomitant]
     Active Substance: METOPROLOL TARTRATE
  2. ASPIRIN. [Concomitant]
     Active Substance: ASPIRIN
  3. STOOL SOFTENER (DOCUSATE) [Concomitant]
     Active Substance: DOCUSATE
  4. ELIQUIS [Concomitant]
     Active Substance: APIXABAN
  5. AMLODIPINE [Concomitant]
     Active Substance: AMLODIPINE BESYLATE
  6. VITAMIN D3 [Concomitant]
     Active Substance: CHOLECALCIFEROL
  7. FOLBIC [Concomitant]
     Active Substance: CYANOCOBALAMIN\FOLIC ACID\PYRIDOXINE
  8. LOSARTAN/HCT [Concomitant]
     Active Substance: HYDROCHLOROTHIAZIDE\LOSARTAN POTASSIUM
  9. ATORVASTATIN [Concomitant]
     Active Substance: ATORVASTATIN
  10. ESCITALOPRAM [Concomitant]
     Active Substance: ESCITALOPRAM OXALATE
  11. LUPRON DEPOT [Suspect]
     Active Substance: LEUPROLIDE ACETATE
     Indication: PROSTATE CANCER
     Dosage: ?          OTHER FREQUENCY:EVERY 6 MONTH;?
     Route: 030
     Dates: start: 201911, end: 202001
  12. ZOLADEX [Suspect]
     Active Substance: GOSERELIN ACETATE
     Indication: PROSTATE CANCER
     Dosage: ?          OTHER FREQUENCY:EVERY 90 DAYS;?
     Route: 058
     Dates: start: 201510, end: 201911
  13. PRESERVISION [Concomitant]
     Active Substance: MINERALS\VITAMINS

REACTIONS (1)
  - Death [None]

NARRATIVE: CASE EVENT DATE: 202001
